FAERS Safety Report 21527845 (Version 1)
Quarter: 2022Q4

REPORT INFORMATION
  Report Type: Spontaneous
  Country: CA (occurrence: CA)
  Receive Date: 20221031
  Receipt Date: 20221031
  Transmission Date: 20230112
  Serious: Yes (Other)
  Sender: FDA-Public Use
  Company Number: CA-GUERBET / CANADA-CA-20220003

PATIENT
  Age: 51 Year
  Sex: Female

DRUGS (5)
  1. LIPIODOL [Suspect]
     Active Substance: ETHIODIZED OIL
     Indication: Therapeutic embolisation
     Dosage: LIPIODOL IN MIXTURE WITH CYANOACRYLATE
     Route: 065
  2. OCRYLATE [Suspect]
     Active Substance: OCRYLATE
     Indication: Therapeutic embolisation
     Dosage: LIPIODOL IN MIXTURE WITH CYANOACRYLATE
     Route: 065
  3. PANTOPRAZOLE [Concomitant]
     Active Substance: PANTOPRAZOLE
     Indication: Product used for unknown indication
  4. OCTREOTIDE [Concomitant]
     Active Substance: OCTREOTIDE
     Indication: Product used for unknown indication
  5. CEFTRIAXONE [Concomitant]
     Active Substance: CEFTRIAXONE
     Indication: Product used for unknown indication

REACTIONS (3)
  - Pulmonary embolism [Recovering/Resolving]
  - Pneumonitis [Recovering/Resolving]
  - Product use in unapproved indication [Recovering/Resolving]
